FAERS Safety Report 9315914 (Version 2)
Quarter: 2013Q2

REPORT INFORMATION
  Report Type: Spontaneous
  Country: RU (occurrence: RU)
  Receive Date: 20130530
  Receipt Date: 20130604
  Transmission Date: 20140414
  Serious: Yes (Death, Hospitalization, Other)
  Sender: FDA-Public Use
  Company Number: RU-AMGEN-RUSSP2013037856

PATIENT
  Age: 23 Year
  Sex: Female
  Weight: 78 kg

DRUGS (7)
  1. NPLATE [Suspect]
     Dosage: UNK
  2. PREDNISOLONE [Concomitant]
     Dosage: 180 MG, QD
     Dates: start: 2012, end: 201209
  3. DEXAMETHASONE [Concomitant]
     Dosage: 30 MG, UNK
     Route: 042
  4. NPLATE [Suspect]
     Indication: THROMBOCYTOPENIC PURPURA
     Dosage: 10 MUG, QWK
     Route: 058
     Dates: start: 201208
  5. NPLATE [Suspect]
     Dosage: UNK
  6. NPLATE [Suspect]
     Dosage: UNK
  7. NPLATE [Suspect]
     Dosage: UNK

REACTIONS (3)
  - Intraventricular haemorrhage [Fatal]
  - Platelet count decreased [Unknown]
  - Gastrointestinal haemorrhage [Unknown]
